FAERS Safety Report 13368551 (Version 1)
Quarter: 2017Q1

REPORT INFORMATION
  Report Type: Spontaneous
  Country: US (occurrence: US)
  Receive Date: 20170324
  Receipt Date: 20170324
  Transmission Date: 20170429
  Serious: No
  Sender: FDA-Public Use
  Company Number: US-PFIZER INC-2017128785

PATIENT
  Age: 62 Year
  Sex: Female

DRUGS (12)
  1. CEPHALEXINE [Concomitant]
     Active Substance: CEPHALEXIN
  2. ALENDRONATE SODIUM. [Concomitant]
     Active Substance: ALENDRONATE SODIUM
  3. METHOTREXATE. [Concomitant]
     Active Substance: METHOTREXATE
  4. ESTRADIOL. [Concomitant]
     Active Substance: ESTRADIOL
     Dosage: UNK
  5. OMEPRAZOLE. [Concomitant]
     Active Substance: OMEPRAZOLE
  6. TESTOSTERONE. [Concomitant]
     Active Substance: TESTOSTERONE
     Dosage: UNK
  7. MISOPROSTOL. [Concomitant]
     Active Substance: MISOPROSTOL
  8. FOLIC ACID. [Concomitant]
     Active Substance: FOLIC ACID
  9. XELJANZ [Suspect]
     Active Substance: TOFACITINIB CITRATE
     Indication: RHEUMATOID ARTHRITIS
     Dosage: 5 MG, 2X/DAY
     Route: 048
  10. TEMAZEPAM. [Concomitant]
     Active Substance: TEMAZEPAM
  11. PREDNISONE. [Concomitant]
     Active Substance: PREDNISONE
  12. VITAMIN D3 [Concomitant]
     Active Substance: CHOLECALCIFEROL

REACTIONS (1)
  - Drug ineffective [Unknown]
